FAERS Safety Report 5008450-X (Version None)
Quarter: 2006Q2

REPORT INFORMATION
  Report Type: 
  Country: None (occurrence: None)
  Receive Date: 20060523
  Receipt Date: 20060516
  Transmission Date: 20061013
  Serious: Yes (Hospitalization)
  Sender: FDA-Public Use
  Company Number: PHRM2006FR01601

PATIENT
  Age: 84 Year
  Sex: Male

DRUGS (1)
  1. TAREG [Suspect]
     Indication: CARDIAC DISORDER
     Dosage: 80 MG, QD
     Route: 048

REACTIONS (3)
  - INTENTIONAL OVERDOSE [None]
  - IRRITABILITY [None]
  - SUICIDE ATTEMPT [None]
